FAERS Safety Report 20997326 (Version 1)
Quarter: 2022Q2

REPORT INFORMATION
  Report Type: Spontaneous
  Country: US (occurrence: None)
  Receive Date: 20220622
  Receipt Date: 20220622
  Transmission Date: 20220721
  Serious: Yes (Hospitalization)
  Sender: FDA-Public Use
  Company Number: None

PATIENT
  Age: 94 Year
  Sex: Female

DRUGS (1)
  1. VYNDAMAX [Suspect]
     Active Substance: TAFAMIDIS
     Indication: Chronic left ventricular failure
     Dosage: FREQUENCY : DAILY;?
     Route: 048
     Dates: start: 20201217

REACTIONS (3)
  - Fall [None]
  - Head injury [None]
  - Skin laceration [None]

NARRATIVE: CASE EVENT DATE: 20220617
